FAERS Safety Report 8586164-7 (Version None)
Quarter: 2012Q3

REPORT INFORMATION
  Report Type: 
  Country: None (occurrence: None)
  Receive Date: 20120810
  Receipt Date: 20120730
  Transmission Date: 20120928
  Serious: Yes (Hospitalization)
  Sender: FDA-Public Use
  Company Number: US-GLAXOSMITHKLINE-A0988824A

PATIENT
  Age: 64 Year
  Sex: Male

DRUGS (6)
  1. LOPRESSOR [Concomitant]
  2. LIPITOR [Concomitant]
  3. AVANDIA [Suspect]
     Indication: DIABETES MELLITUS
     Dosage: 8MG PER DAY
     Route: 048
     Dates: end: 20081101
  4. INSULIN [Concomitant]
  5. NEXIUM [Concomitant]
  6. PLETAL [Concomitant]

REACTIONS (1)
  - MYOCARDIAL INFARCTION [None]
